FAERS Safety Report 7939780-7 (Version None)
Quarter: 2011Q4

REPORT INFORMATION
  Report Type: 
  Country: None (occurrence: None)
  Receive Date: 20111125
  Receipt Date: 20111121
  Transmission Date: 20120403
  Serious: Yes (Other)
  Sender: FDA-Public Use
  Company Number: PHEH2005US14202

PATIENT
  Sex: Female
  Weight: 94.3 kg

DRUGS (33)
  1. TAXOL [Concomitant]
  2. AROMASIN [Concomitant]
  3. VITAMIN TAB [Concomitant]
  4. ROCEPHIN [Concomitant]
  5. AREDIA [Suspect]
     Dosage: 90 MG, QMO
     Dates: start: 19991101, end: 20020221
  6. ZOMETA [Suspect]
     Indication: METASTASES TO BONE
     Dosage: 4 MG, QMO
     Dates: start: 20020321, end: 20040417
  7. ZOMETA [Suspect]
     Dosage: 4 MG, Q8W
     Dates: start: 20040501, end: 20041001
  8. HERCEPTIN [Concomitant]
  9. SYNTHROID [Concomitant]
     Indication: AUTOIMMUNE THYROIDITIS
     Dosage: 0.015 MG, QD
  10. VALIUM [Concomitant]
  11. AREDIA [Suspect]
     Indication: METASTASES TO BONE
     Dosage: 90 MG, QMO
     Dates: start: 19990623, end: 19990801
  12. THIOTEPA [Concomitant]
  13. TAMOXIFEN CITRATE [Concomitant]
     Dosage: 20 MG, QD
  14. ASPIRIN [Concomitant]
  15. AMOXICILLIN [Concomitant]
  16. HERBAL EXTRACTS NOS [Concomitant]
  17. ATIVAN [Concomitant]
     Indication: ANXIETY
     Dosage: 1 MG, UNK
  18. METHIMAZOLE [Concomitant]
     Dosage: 10 MG, BID
  19. AEROSOL [Concomitant]
     Dates: start: 20110607
  20. CALCIUM [Concomitant]
  21. VENLAFAXINE [Concomitant]
  22. CHLORHEXIDINE GLUCONATE [Concomitant]
  23. NOVANTRONE [Concomitant]
  24. CYTOXAN [Concomitant]
  25. THERATOPE [Concomitant]
     Indication: BREAST CANCER
     Dosage: UNK
     Dates: start: 20000301, end: 20001101
  26. DOLOBID [Concomitant]
  27. ACETAMINOPHEN [Concomitant]
  28. ADRIAMYCIN PFS [Concomitant]
  29. NOLVADEX [Concomitant]
  30. FEMARA [Concomitant]
  31. ZOLOFT [Concomitant]
     Dosage: 50 MG, QD
  32. LEVOTHYROXINE SODIUM [Concomitant]
  33. PROVENTIL-HFA [Concomitant]

REACTIONS (97)
  - TOOTH DISORDER [None]
  - INFLAMMATION [None]
  - PURULENT DISCHARGE [None]
  - COMPUTERISED TOMOGRAM ABNORMAL [None]
  - LIBIDO DECREASED [None]
  - LOOSE TOOTH [None]
  - TOOTHACHE [None]
  - ADENOMA BENIGN [None]
  - DEPRESSION [None]
  - ORAL PAIN [None]
  - PERCUSSION TEST ABNORMAL [None]
  - EAR PAIN [None]
  - FOREIGN BODY [None]
  - TOOTH FRACTURE [None]
  - OSTEOMYELITIS [None]
  - RESORPTION BONE INCREASED [None]
  - MORGANELLA INFECTION [None]
  - GASTROINTESTINAL DISORDER [None]
  - HEPATIC STEATOSIS [None]
  - MALAISE [None]
  - FATIGUE [None]
  - BRUXISM [None]
  - PALATAL DISORDER [None]
  - UTERINE LEIOMYOMA [None]
  - SINUS CONGESTION [None]
  - LUNG INFILTRATION [None]
  - VISUAL IMPAIRMENT [None]
  - OEDEMA PERIPHERAL [None]
  - WHEEZING [None]
  - OSTEOARTHRITIS [None]
  - GINGIVAL OEDEMA [None]
  - PERIODONTAL DISEASE [None]
  - PRIMARY SEQUESTRUM [None]
  - ACTINOMYCOSIS [None]
  - GINGIVAL SWELLING [None]
  - WEIGHT INCREASED [None]
  - OTORRHOEA [None]
  - SARCOIDOSIS [None]
  - LIGAMENT SPRAIN [None]
  - OSTEOPENIA [None]
  - MITRAL VALVE INCOMPETENCE [None]
  - CHILLS [None]
  - ERYTHEMA [None]
  - ORAL DISCHARGE [None]
  - SOFT TISSUE DISORDER [None]
  - FISTULA [None]
  - HOT FLUSH [None]
  - MYALGIA [None]
  - PERIODONTITIS [None]
  - URINARY TRACT INFECTION [None]
  - JOINT EFFUSION [None]
  - MONARTHRITIS [None]
  - PSORIASIS [None]
  - RHINORRHOEA [None]
  - HILAR LYMPHADENOPATHY [None]
  - MUSCULOSKELETAL PAIN [None]
  - ORAL DISCOMFORT [None]
  - OTITIS EXTERNA [None]
  - ANXIETY [None]
  - DYSPNOEA EXERTIONAL [None]
  - GINGIVAL DISORDER [None]
  - MELANOSIS COLI [None]
  - IRON DEFICIENCY ANAEMIA [None]
  - BONE FORMATION INCREASED [None]
  - SWELLING [None]
  - TOOTH ABSCESS [None]
  - INFECTION [None]
  - ATELECTASIS [None]
  - ALOPECIA [None]
  - DIVERTICULUM INTESTINAL [None]
  - HYPERTENSION [None]
  - TYPE V HYPERLIPIDAEMIA [None]
  - BURSITIS [None]
  - FIBROMA [None]
  - APICAL GRANULOMA [None]
  - BRONCHITIS [None]
  - OVARIAN FAILURE [None]
  - OSTEONECROSIS OF JAW [None]
  - KLEBSIELLA INFECTION [None]
  - PYREXIA [None]
  - HYPOTHYROIDISM [None]
  - TOOTH INFECTION [None]
  - ANAEMIA [None]
  - PARAESTHESIA [None]
  - OCCULT BLOOD POSITIVE [None]
  - SKIN PAPILLOMA [None]
  - COUGH [None]
  - SINUS HEADACHE [None]
  - LOWER EXTREMITY MASS [None]
  - ROTATOR CUFF SYNDROME [None]
  - BONE DISORDER [None]
  - SMEAR CERVIX ABNORMAL [None]
  - TOOTH LOSS [None]
  - GLUCOSE TOLERANCE TEST ABNORMAL [None]
  - OROPHARYNGEAL PAIN [None]
  - PNEUMONIA [None]
  - EPSTEIN-BARR VIRUS INFECTION [None]
